FAERS Safety Report 4691339-3 (Version None)
Quarter: 2005Q2

REPORT INFORMATION
  Report Type: 
  Country: None (occurrence: None)
  Receive Date: 20050615
  Receipt Date: 20050526
  Transmission Date: 20051028
  Serious: Yes (Disabling, Other)
  Sender: FDA-Public Use
  Company Number: JP-MERCK-0505USA03499

PATIENT
  Age: 74 Year
  Sex: Female
  Weight: 53 kg

DRUGS (5)
  1. COZAAR [Suspect]
     Indication: ESSENTIAL HYPERTENSION
     Route: 048
     Dates: start: 20000817, end: 20050514
  2. [THERAPY UNSPECIFIED] [Suspect]
     Indication: NEOPLASM PROPHYLAXIS
     Route: 058
     Dates: start: 20040310, end: 20050510
  3. URSO [Concomitant]
     Route: 048
     Dates: start: 19851213, end: 20050514
  4. GLYCYRON [Concomitant]
     Route: 048
     Dates: start: 19950519, end: 20050514
  5. TEPRENONE [Concomitant]
     Indication: GASTRITIS
     Route: 048
     Dates: start: 19930413, end: 20050514

REACTIONS (2)
  - CEREBRAL HAEMORRHAGE [None]
  - PLATELET COUNT DECREASED [None]
